FAERS Safety Report 19950900 (Version 1)
Quarter: 2021Q4

REPORT INFORMATION
  Report Type: Spontaneous
  Country: US (occurrence: US)
  Receive Date: 20211014
  Receipt Date: 20211014
  Transmission Date: 20220303
  Serious: Yes (Hospitalization)
  Sender: FDA-Public Use
  Company Number: US-ELI_LILLY_AND_COMPANY-US202110001618

PATIENT
  Age: 17 Year
  Sex: Male

DRUGS (2)
  1. GLUCAGON [Suspect]
     Active Substance: GLUCAGON
     Indication: Blood glucose decreased
     Dosage: UNK UNK, UNKNOWN
     Route: 065
  2. NOVOLOG [Suspect]
     Active Substance: INSULIN ASPART
     Indication: Type 1 diabetes mellitus
     Dosage: CONTINUOUS RATE, VIA INSULIN PUMP
     Route: 058

REACTIONS (2)
  - Blood glucose decreased [Recovered/Resolved]
  - Drug ineffective [Unknown]

NARRATIVE: CASE EVENT DATE: 20210902
